FAERS Safety Report 8471094-1 (Version None)
Quarter: 2012Q2

REPORT INFORMATION
  Report Type: 
  Country: None (occurrence: None)
  Receive Date: 20120627
  Receipt Date: 20120619
  Transmission Date: 20120825
  Serious: Yes (Hospitalization)
  Sender: FDA-Public Use
  Company Number: US-UCBSA-060099

PATIENT
  Age: 57 Year
  Sex: Male
  Weight: 58.51 kg

DRUGS (12)
  1. FLUDROCORTIZONE [Concomitant]
     Indication: BLOOD PRESSURE
     Route: 048
     Dates: start: 20110101
  2. LEVETIRACETRAM [Concomitant]
     Indication: GRAND MAL CONVULSION
     Dates: start: 20120101
  3. MEBARAL [Concomitant]
     Indication: GRAND MAL CONVULSION
     Dates: end: 20120101
  4. DILANTIN [Concomitant]
     Indication: GRAND MAL CONVULSION
     Dates: start: 20120101, end: 20120515
  5. DILANTIN [Concomitant]
     Dates: start: 20120501, end: 20120101
  6. VIMPAT [Suspect]
     Dosage: 2 ND WEEK INCREASED
     Route: 048
     Dates: start: 20120401, end: 20120401
  7. VITAMIN D [Concomitant]
     Route: 048
  8. M.V.I. [Concomitant]
     Route: 048
  9. DILANTIN [Concomitant]
     Dates: start: 20120515, end: 20120501
  10. VIMPAT [Suspect]
     Indication: GRAND MAL CONVULSION
     Route: 048
     Dates: start: 20120501
  11. VIMPAT [Suspect]
     Dosage: 1ST WEEK
     Route: 048
     Dates: start: 20120327, end: 20120401
  12. VIMPAT [Suspect]
     Route: 048
     Dates: start: 20120401, end: 20120101

REACTIONS (5)
  - GRAND MAL CONVULSION [None]
  - PYREXIA [None]
  - INFECTION [None]
  - MUSCLE TWITCHING [None]
  - TREMOR [None]
